FAERS Safety Report 12377619 (Version 1)
Quarter: 2016Q2

REPORT INFORMATION
  Report Type: Spontaneous
  Country: US (occurrence: US)
  Receive Date: 20160517
  Receipt Date: 20160517
  Transmission Date: 20160815
  Serious: No
  Sender: FDA-Public Use
  Company Number: US-JNJFOC-20160500746

PATIENT
  Sex: Female
  Weight: 55.79 kg

DRUGS (3)
  1. MOTRIN [Suspect]
     Active Substance: IBUPROFEN
     Route: 065
  2. XARELTO [Concomitant]
     Active Substance: RIVAROXABAN
     Indication: ATRIAL FIBRILLATION
     Route: 048
     Dates: start: 20160407
  3. MOTRIN [Suspect]
     Active Substance: IBUPROFEN
     Indication: PRODUCT USED FOR UNKNOWN INDICATION
     Route: 065

REACTIONS (3)
  - Abdominal pain upper [Unknown]
  - Hypokinesia [Unknown]
  - Drug hypersensitivity [Unknown]
